FAERS Safety Report 23714997 (Version 4)
Quarter: 2024Q2

REPORT INFORMATION
  Report Type: Spontaneous
  Country: JP (occurrence: JP)
  Receive Date: 20240406
  Receipt Date: 20240530
  Transmission Date: 20240716
  Serious: Yes (Other)
  Sender: FDA-Public Use
  Company Number: JP-CHUGAI-2024011002

PATIENT
  Age: 51 Year
  Sex: Male
  Weight: 70 kg

DRUGS (8)
  1. HEMLIBRA [Suspect]
     Active Substance: EMICIZUMAB-KXWH
     Indication: Haemophilia A without inhibitors
     Dosage: 210 MILLIGRAM, ONCE/2WEEKS
     Route: 058
     Dates: start: 20200203
  2. GLICLAZIDE [Concomitant]
     Active Substance: GLICLAZIDE
     Dosage: UNK
  3. METFORMIN HYDROCHLORIDE\VILDAGLIPTIN [Concomitant]
     Active Substance: METFORMIN HYDROCHLORIDE\VILDAGLIPTIN
     Dosage: UNK
  4. TELMISARTAN [Concomitant]
     Active Substance: TELMISARTAN
     Dosage: UNK
  5. AMLODIPINE BESYLATE [Concomitant]
     Active Substance: AMLODIPINE BESYLATE
     Dosage: UNK
  6. ROSUVASTATIN CALCIUM [Concomitant]
     Active Substance: ROSUVASTATIN CALCIUM
     Dosage: UNK
  7. EZETIMIBE [Concomitant]
     Active Substance: EZETIMIBE
     Dosage: UNK
  8. CLOTIAZEPAM [Concomitant]
     Active Substance: CLOTIAZEPAM
     Dosage: UNK

REACTIONS (1)
  - Haematoma muscle [Recovering/Resolving]

NARRATIVE: CASE EVENT DATE: 20240206
